FAERS Safety Report 13081625 (Version 5)
Quarter: 2017Q3

REPORT INFORMATION
  Report Type: Report from Study
  Country: RU (occurrence: RU)
  Receive Date: 20170103
  Receipt Date: 20170901
  Transmission Date: 20171127
  Serious: Yes (Hospitalization, Disabling)
  Sender: FDA-Public Use
  Company Number: RU-ROCHE-1860853

PATIENT
  Age: 75 Year
  Sex: Female
  Weight: 58 kg

DRUGS (10)
  1. BISOPROLOL [Concomitant]
     Active Substance: BISOPROLOL
     Indication: HYPERTENSION
     Route: 065
     Dates: start: 201608, end: 201610
  2. GRANOCYT [Concomitant]
     Indication: LEUKOPENIA
     Route: 065
     Dates: start: 20161119, end: 20161119
  3. ATEZOLIZUMAB. [Suspect]
     Active Substance: ATEZOLIZUMAB
     Indication: BREAST CANCER METASTATIC
     Dosage: DATE OF MOST RECENT DOSE PRIOR TO THE EVENT ONSET: 09/NOV/2016
     Route: 042
     Dates: start: 20161109
  4. RELAXAN [Concomitant]
     Indication: INSOMNIA
     Route: 065
     Dates: start: 2016
  5. REHYDRON (RUSSIA) [Concomitant]
     Indication: DIARRHOEA
     Route: 065
     Dates: start: 20161118, end: 20161118
  6. NAB-PACLITAXEL [Suspect]
     Active Substance: PACLITAXEL
     Indication: BREAST CANCER METASTATIC
     Dosage: DATE OF MOST RECENT DOSE PRIOR TO THE EVENT ONSET: 16/NOV/2016, 21/DEC/2016 (75 MG/M2)
     Route: 042
     Dates: start: 20161109
  7. KETOROLAC [Concomitant]
     Active Substance: KETOROLAC\KETOROLAC TROMETHAMINE
     Indication: BACK PAIN
     Route: 065
     Dates: start: 20161026
  8. REHYDRON (RUSSIA) [Concomitant]
     Indication: GASTROINTESTINAL TOXICITY
  9. PROCAINE [Concomitant]
     Active Substance: PROCAINE
     Route: 065
     Dates: start: 20170113, end: 20170113
  10. SULFOCAMPHOCAIN [Concomitant]
     Indication: DYSPNOEA
     Route: 065
     Dates: start: 20170112

REACTIONS (5)
  - Gastrointestinal toxicity [Recovered/Resolved]
  - Pneumonia [Recovered/Resolved]
  - Pneumonia [Not Recovered/Not Resolved]
  - Peripheral motor neuropathy [Not Recovered/Not Resolved]
  - Myopathy [Not Recovered/Not Resolved]

NARRATIVE: CASE EVENT DATE: 20161118
